FAERS Safety Report 7924383-0 (Version None)
Quarter: 2011Q4

REPORT INFORMATION
  Report Type: 
  Country: None (occurrence: None)
  Receive Date: 20111117
  Receipt Date: 20100507
  Transmission Date: 20120403
  Serious: Yes (Death)
  Sender: FDA-Public Use
  Company Number: PHHY2010BR092658

PATIENT

DRUGS (4)
  1. MYCOPHENOLIC ACID [Suspect]
     Indication: RENAL TRANSPLANT
     Dosage: 720 MG, BID
  2. BASILIXIMAB [Suspect]
     Dosage: 20 MG, UNK
  3. CYCLOSPORINE [Suspect]
     Indication: RENAL TRANSPLANT
  4. BASILIXIMAB [Suspect]
     Indication: RENAL TRANSPLANT
     Dosage: 20 MG, UNK

REACTIONS (2)
  - INFECTION [None]
  - INFESTATION [None]
